FAERS Safety Report 7807377-5 (Version None)
Quarter: 2011Q4

REPORT INFORMATION
  Report Type: 
  Country: None (occurrence: None)
  Receive Date: 20111011
  Receipt Date: 20110926
  Transmission Date: 20120403
  Serious: Yes (Hospitalization, Other)
  Sender: FDA-Public Use
  Company Number: NL-ARROW GEN-2010-10446

PATIENT
  Sex: Female

DRUGS (7)
  1. ECULIZUMAB [Suspect]
     Dosage: 900 MG, UNKNOWN
     Route: 042
     Dates: start: 20090121, end: 20090215
  2. ECULIZUMAB [Suspect]
     Indication: HAEMOLYTIC URAEMIC SYNDROME
     Dosage: 1200 MG, UNKNOWN
     Route: 042
     Dates: start: 20090228, end: 20110531
  3. ALFACALCIDOL [Concomitant]
     Indication: PRODUCT USED FOR UNKNOWN INDICATION
     Dosage: UNK
     Route: 065
     Dates: start: 20080101
  4. ASCAL                              /00002702/ [Concomitant]
     Indication: PRODUCT USED FOR UNKNOWN INDICATION
     Dosage: UNK
     Route: 065
     Dates: start: 20080101
  5. PREDNISOLONE [Suspect]
     Indication: PRODUCT USED FOR UNKNOWN INDICATION
     Dosage: UNK
     Route: 065
     Dates: start: 20080101
  6. MYCOPHENOLATE MEFETIL [Suspect]
     Indication: PRODUCT USED FOR UNKNOWN INDICATION
     Dosage: UNK
     Route: 065
     Dates: start: 20080101
  7. TACROLIMUS [Suspect]
     Indication: PRODUCT USED FOR UNKNOWN INDICATION
     Dosage: UNK
     Route: 065
     Dates: start: 20080101

REACTIONS (5)
  - HEADACHE [None]
  - PYREXIA [None]
  - MYALGIA [None]
  - DIARRHOEA [None]
  - MENINGOCOCCAL SEPSIS [None]
